FAERS Safety Report 10653530 (Version 1)
Quarter: 2014Q4

REPORT INFORMATION
  Report Type: Report from Study
  Country: FR (occurrence: FR)
  Receive Date: 20141216
  Receipt Date: 20141216
  Transmission Date: 20150529
  Serious: Yes (Other)
  Sender: FDA-Public Use
  Company Number: FR-ROCHE-1504534

PATIENT
  Age: 70 Year
  Sex: Female

DRUGS (9)
  1. FLECAINE [Concomitant]
     Active Substance: FLECAINIDE
     Dosage: 200 LP 1DF/DAY
     Route: 065
  2. RITUXIMAB [Suspect]
     Active Substance: RITUXIMAB
     Indication: DIFFUSE LARGE B-CELL LYMPHOMA
     Dosage: 8 COURSES IN TOTAL
     Route: 042
     Dates: start: 20031010, end: 20040309
  3. IDARUBICIN [Suspect]
     Active Substance: IDARUBICIN
     Indication: DIFFUSE LARGE B-CELL LYMPHOMA
     Dosage: 8 CYCLES (1 CYCLE EVERY 21 DAYS)
     Route: 048
     Dates: start: 20031010, end: 20040309
  4. ENDOXAN [Suspect]
     Active Substance: CYCLOPHOSPHAMIDE
     Indication: DIFFUSE LARGE B-CELL LYMPHOMA
     Dosage: 8 CYCLES IN TOTAL
     Route: 065
     Dates: start: 20031010, end: 20040309
  5. STILNOX [Concomitant]
     Active Substance: ZOLPIDEM TARTRATE
  6. CELLTOP [Suspect]
     Active Substance: ETOPOSIDE
     Indication: DIFFUSE LARGE B-CELL LYMPHOMA
     Dosage: 8 CYCLES IN TOTAL
     Route: 065
     Dates: start: 20031010, end: 20040309
  7. ISOPTIN [Concomitant]
     Active Substance: VERAPAMIL HYDROCHLORIDE
  8. LEXOMIL [Concomitant]
     Active Substance: BROMAZEPAM
     Route: 065
  9. LEVOTHYROX [Concomitant]
     Active Substance: LEVOTHYROXINE
     Dosage: 1 DF/DAY
     Route: 065

REACTIONS (4)
  - Sinoatrial block [Recovered/Resolved]
  - Atrial fibrillation [Recovered/Resolved]
  - Bradycardia [Recovered/Resolved]
  - Paroxysmal arrhythmia [Recovered/Resolved]

NARRATIVE: CASE EVENT DATE: 200509
